FAERS Safety Report 15043928 (Version 1)
Quarter: 2018Q2

REPORT INFORMATION
  Report Type: Spontaneous
  Country: US (occurrence: US)
  Receive Date: 20180531
  Receipt Date: 20180531
  Transmission Date: 20180711
  Serious: Yes (Death)
  Sender: FDA-Public Use
  Company Number: None

PATIENT
  Age: 49 Year
  Sex: Female

DRUGS (2)
  1. ENOXAPARIN 100 MG [Suspect]
     Active Substance: ENOXAPARIN
     Indication: DEEP VEIN THROMBOSIS
     Dosage: 100 MG EVERY DAY UNDER THE SKIN
     Dates: start: 20170831
  2. ENOXAPARIN 100 MG [Suspect]
     Active Substance: ENOXAPARIN
     Indication: EMBOLISM
     Dosage: 100 MG EVERY DAY UNDER THE SKIN
     Dates: start: 20170831

REACTIONS (1)
  - Death [None]

NARRATIVE: CASE EVENT DATE: 20180519
